FAERS Safety Report 9643027 (Version 4)
Quarter: 2014Q1

REPORT INFORMATION
  Report Type: Spontaneous
  Country: JP (occurrence: JP)
  Receive Date: 20131024
  Receipt Date: 20140127
  Transmission Date: 20141002
  Serious: Yes (Hospitalization, Other)
  Sender: FDA-Public Use
  Company Number: JP-EISAI INC-E3810-06374-SPO-JP

PATIENT
  Age: 77 Year
  Sex: Female
  Weight: 149 kg

DRUGS (6)
  1. PARIET (RABEPRAZOLE) [Suspect]
     Indication: GASTRIC ULCER HAEMORRHAGE
     Route: 048
     Dates: start: 20130219, end: 20130329
  2. MAGMITT [Suspect]
     Indication: PRODUCT USED FOR UNKNOWN INDICATION
     Route: 048
     Dates: start: 20130219, end: 20130329
  3. CELECOX [Suspect]
     Route: 048
     Dates: end: 20130329
  4. PROMAC [Suspect]
     Indication: PRODUCT USED FOR UNKNOWN INDICATION
     Route: 048
  5. CRESTOR [Suspect]
     Route: 048
     Dates: end: 20130329
  6. PURSENNID [Suspect]
     Route: 048
     Dates: end: 20130329

REACTIONS (3)
  - Hepatic function abnormal [Recovered/Resolved]
  - Melaena [Recovered/Resolved]
  - Large intestinal ulcer [Recovered/Resolved]
